FAERS Safety Report 4640434-3 (Version None)
Quarter: 2005Q2

REPORT INFORMATION
  Report Type: 
  Country: None (occurrence: None)
  Receive Date: 20050419
  Receipt Date: 20050406
  Transmission Date: 20051028
  Serious: Yes (Hospitalization)
  Sender: FDA-Public Use
  Company Number: 2005056813

PATIENT
  Age: 68 Year
  Sex: Female
  Weight: 68.0396 kg

DRUGS (6)
  1. BEXTRA [Suspect]
     Indication: ARTHRITIS
     Dosage: UNKNOWN
     Route: 065
  2. ROGAINE [Suspect]
     Indication: ALOPECIA
     Dosage: 2 ML (1 ML, 2 IN 1 D), UNKNOWN
     Route: 065
  3. ROGAINE [Suspect]
     Indication: ALOPECIA
     Dosage: UNKNOWN
     Route: 065
     Dates: start: 20050406
  4. ALL OTHER THERAPEUTIC PRODUCTS (ALL OTHER THERAPEUTIC PRODUCTS) [Concomitant]
  5. METFORMIN HCL [Concomitant]
  6. GLIMEPIRIDE [Concomitant]

REACTIONS (5)
  - DIARRHOEA INFECTIOUS [None]
  - ESCHERICHIA INFECTION [None]
  - GASTRIC ULCER HAEMORRHAGE [None]
  - KIDNEY INFECTION [None]
  - LOSS OF CONSCIOUSNESS [None]
